FAERS Safety Report 8289654-X (Version None)
Quarter: 2012Q2

REPORT INFORMATION
  Report Type: 
  Country: None (occurrence: None)
  Receive Date: 20120417
  Receipt Date: 20120409
  Transmission Date: 20120825
  Serious: Yes (Other)
  Sender: FDA-Public Use
  Company Number: US-BAYER-2012-034660

PATIENT
  Sex: Female

DRUGS (2)
  1. YASMIN [Suspect]
     Dosage: UNK
     Dates: start: 20070201, end: 20110401
  2. YAZ [Suspect]
     Dosage: UNK
     Dates: start: 20070201, end: 20110401

REACTIONS (6)
  - EMOTIONAL DISTRESS [None]
  - PAIN [None]
  - PSYCHOLOGICAL TRAUMA [None]
  - CHOLECYSTITIS CHRONIC [None]
  - INJURY [None]
  - ANXIETY [None]
